FAERS Safety Report 6966197-4 (Version None)
Quarter: 2010Q3

REPORT INFORMATION
  Report Type: 
  Country: None (occurrence: None)
  Receive Date: 20100903
  Receipt Date: 20100831
  Transmission Date: 20110219
  Serious: Yes (Death)
  Sender: FDA-Public Use
  Company Number: PHHY2010DE57766

PATIENT
  Sex: Female
  Weight: 65 kg

DRUGS (1)
  1. ZOLEDRONATE T29581+ [Suspect]
     Indication: BONE DISORDER
     Dosage: 4 MG, EVERY 4 WEEKS
     Route: 042
     Dates: start: 20090909, end: 20091007

REACTIONS (1)
  - DEATH [None]
